FAERS Safety Report 6330129-2 (Version None)
Quarter: 2009Q3

REPORT INFORMATION
  Report Type: 
  Country: None (occurrence: None)
  Receive Date: 20090827
  Receipt Date: 20090818
  Transmission Date: 20100115
  Serious: Yes (Hospitalization)
  Sender: FDA-Public Use
  Company Number: US-BIOGENIDEC-2009BI018216

PATIENT
  Sex: Female
  Weight: 58 kg

DRUGS (3)
  1. AVONEX [Suspect]
     Indication: MULTIPLE SCLEROSIS
     Route: 030
     Dates: start: 19980101, end: 20020812
  2. AVONEX [Suspect]
     Route: 030
     Dates: start: 20070501, end: 20070903
  3. AVONEX [Suspect]
     Route: 030
     Dates: start: 20080108

REACTIONS (4)
  - IMMUNE SYSTEM DISORDER [None]
  - MOTOR DYSFUNCTION [None]
  - VITAMIN D DECREASED [None]
  - WHITE BLOOD CELL COUNT DECREASED [None]
